FAERS Safety Report 20069316 (Version 1)
Quarter: 2021Q4

REPORT INFORMATION
  Report Type: Spontaneous
  Country: CA (occurrence: CA)
  Receive Date: 20211115
  Receipt Date: 20211115
  Transmission Date: 20220303
  Serious: Yes (Other)
  Sender: FDA-Public Use
  Company Number: CA-PFIZER INC-202101539451

PATIENT
  Age: 56 Year
  Sex: Female

DRUGS (1)
  1. SERTRALINE HYDROCHLORIDE [Suspect]
     Active Substance: SERTRALINE HYDROCHLORIDE
     Indication: Depression
     Dosage: 50 MG, ONCE A DAY (REPORTED AS 1 EVERY 1 DAYS)
     Route: 048

REACTIONS (2)
  - Suicidal ideation [Unknown]
  - Crying [Unknown]
